FAERS Safety Report 8760860 (Version 5)
Quarter: 2012Q4

REPORT INFORMATION
  Report Type: Report from Study
  Country: NL (occurrence: NL)
  Receive Date: 20120830
  Receipt Date: 20121122
  Transmission Date: 20130627
  Serious: Yes (Hospitalization, Other)
  Sender: FDA-Public Use
  Company Number: NL-GENZYME-CLOF-1002274

PATIENT
  Age: 31 Year
  Sex: Female
  Weight: 56 kg

DRUGS (3)
  1. EVOLTRA [Suspect]
     Indication: ACUTE MYELOID LEUKAEMIA
     Dosage: 16 mg, qd
     Route: 042
     Dates: start: 20120727
  2. CYTARABINE [Suspect]
     Indication: ACUTE MYELOID LEUKAEMIA
     Dosage: 1600 mg, qd
     Route: 042
     Dates: start: 20120727
  3. AMSACRINE [Suspect]
     Indication: ACUTE MYELOID LEUKAEMIA
     Dosage: 190 mg, qd
     Route: 042
     Dates: start: 20120730

REACTIONS (5)
  - Sepsis [Recovered/Resolved with Sequelae]
  - Oedema peripheral [Unknown]
  - Ileus [Recovered/Resolved]
  - Caecitis [Not Recovered/Not Resolved]
  - Respiratory failure [Recovered/Resolved]
